FAERS Safety Report 14596194 (Version 1)
Quarter: 2018Q1

REPORT INFORMATION
  Report Type: Spontaneous
  Country: NL (occurrence: NL)
  Receive Date: 20180303
  Receipt Date: 20180303
  Transmission Date: 20180509
  Serious: Yes (Death, Hospitalization)
  Sender: FDA-Public Use
  Company Number: NL-AUROBINDO-AUR-APL-2018-010707

PATIENT

DRUGS (5)
  1. MINOCIN [Concomitant]
     Active Substance: MINOCYCLINE HYDROCHLORIDE
  2. RIFAMPICIN [Concomitant]
     Active Substance: RIFAMPIN
  3. THALIDOMIDE [Suspect]
     Active Substance: THALIDOMIDE
     Indication: TYPE 2 LEPRA REACTION
     Route: 065
  4. CLOFAZIMINE [Concomitant]
     Active Substance: CLOFAZIMINE
     Route: 065
  5. PREDNISONE. [Suspect]
     Active Substance: PREDNISONE
     Indication: TYPE 2 LEPRA REACTION
     Route: 065

REACTIONS (6)
  - Hepatic necrosis [Fatal]
  - Rash erythematous [Fatal]
  - Varicella zoster virus infection [Fatal]
  - Product use in unapproved indication [Unknown]
  - Back pain [Fatal]
  - Blister [Fatal]
